FAERS Safety Report 9170421 (Version 1)
Quarter: 2013Q1

REPORT INFORMATION
  Report Type: Spontaneous
  Country: FR (occurrence: FR)
  Receive Date: 20130319
  Receipt Date: 20130319
  Transmission Date: 20140127
  Serious: Yes (Hospitalization, Disabling)
  Sender: FDA-Public Use
  Company Number: FR-JNJFOC-20130305954

PATIENT
  Age: 51 Year
  Sex: Female

DRUGS (15)
  1. PREZISTA [Suspect]
     Indication: HIV INFECTION
     Route: 048
     Dates: start: 20100916, end: 20120503
  2. PREZISTA [Suspect]
     Indication: HIV INFECTION
     Route: 048
  3. ISENTRESS [Suspect]
     Indication: HIV INFECTION
     Route: 048
     Dates: start: 20120503, end: 20120710
  4. KIVEXA [Suspect]
     Indication: HIV INFECTION
     Dosage: 600 MG/ 300 MG
     Route: 048
     Dates: start: 20080708, end: 20120710
  5. NORVIR [Suspect]
     Indication: HIV INFECTION
     Route: 048
  6. NORVIR [Suspect]
     Indication: HIV INFECTION
     Route: 048
     Dates: start: 20070712, end: 20120503
  7. HYDROCORTISONE [Concomitant]
     Indication: ADRENAL INSUFFICIENCY
     Route: 065
  8. AVLOCARDYL [Concomitant]
     Indication: PORTAL HYPERTENSION
     Dosage: HALF TABLET FOUR TIMES A DAY
     Route: 065
  9. INEXIUM [Concomitant]
  10. STILNOX [Concomitant]
     Route: 065
  11. CACIT VITAMINE D3 [Concomitant]
     Route: 065
  12. METHADONE [Concomitant]
     Dosage: ONE VIAL PER DAY
     Route: 065
  13. SEREVENT (SALMETEROL) [Concomitant]
     Dosage: ONE INHALATION
     Route: 055
  14. SPIRIVA [Concomitant]
     Route: 065
  15. TOPALGIC LP [Concomitant]
     Route: 065
     Dates: start: 20100906

REACTIONS (2)
  - Neuropathy peripheral [Unknown]
  - Pain in extremity [Unknown]
